FAERS Safety Report 5101918-7 (Version None)
Quarter: 2006Q3

REPORT INFORMATION
  Report Type: 
  Country: None (occurrence: None)
  Receive Date: 20060907
  Receipt Date: 20060823
  Transmission Date: 20061208
  Serious: Yes (Other)
  Sender: FDA-Public Use
  Company Number: 2006-BP-09828RO

PATIENT
  Age: 42 Year
  Sex: Female

DRUGS (2)
  1. ZONISAMIDE [Suspect]
     Indication: ESSENTIAL TREMOR
     Dosage: 100 MG DAILY PO
     Route: 048
  2. PROPRANOLOL [Suspect]
     Indication: ESSENTIAL TREMOR

REACTIONS (7)
  - DISTRACTIBILITY [None]
  - HYPOTENSION [None]
  - INSOMNIA [None]
  - LOGORRHOEA [None]
  - MANIA [None]
  - PSYCHOMOTOR HYPERACTIVITY [None]
  - THINKING ABNORMAL [None]
